FAERS Safety Report 17140938 (Version 1)
Quarter: 2019Q4

REPORT INFORMATION
  Report Type: Spontaneous
  Country: US (occurrence: US)
  Receive Date: 20191211
  Receipt Date: 20191211
  Transmission Date: 20200122
  Serious: Yes (Other)
  Sender: FDA-Public Use
  Company Number: US-PFIZER INC-2015258743

PATIENT
  Age: 71 Year
  Sex: Female

DRUGS (22)
  1. ZITHROMAX [Concomitant]
     Active Substance: AZITHROMYCIN DIHYDRATE
     Indication: LUNG TRANSPLANT
     Dosage: 250 MG, UNK (TAKE 1 TABLET BY MOUTH THREE TIMES A WEEK)
     Route: 048
  2. CYANOCOBALAMIN. [Concomitant]
     Active Substance: CYANOCOBALAMIN
     Dosage: 1000 ?G, DAILY
     Route: 048
  3. LASIX [Concomitant]
     Active Substance: FUROSEMIDE
     Indication: PERIPHERAL SWELLING
     Dosage: 20 MG TABLET (1-2 TABS PM )
  4. MAG OXIDE [Concomitant]
     Active Substance: MAGNESIUM OXIDE
     Dosage: 400 MG, 2X/DAY
     Route: 048
  5. VITAMIN D /00318501/ [Concomitant]
     Active Substance: CHOLECALCIFEROL
     Dosage: 1000 IU, DAILY
     Route: 048
  6. DELTASONE [Concomitant]
     Active Substance: PREDNISONE
     Dosage: 5 MG, UNK (TAKE 1 TABLET BY MOUTH FOUR TIMES A WEEK. MON, WED, FRI, SUN)
     Route: 048
  7. RAPAMUNE [Suspect]
     Active Substance: SIROLIMUS
     Dosage: 0.5 MG, UNK (1 TAB Q 48HR)
     Route: 048
  8. AMOXIL [Concomitant]
     Active Substance: AMOXICILLIN
     Dosage: 500 MG (TAKE 4 CAPS (2000MG) 1 HOUR PRIOR TO ANY DENTAL CLEANINGS OR DENTAL WORK)
  9. DESYREL [Concomitant]
     Active Substance: TRAZODONE HYDROCHLORIDE
     Dosage: 100 MG TABLET (1 TABLET BY MOUTH NIGHTLY AT BEDTIME)
     Route: 048
  10. RAPAMUNE [Suspect]
     Active Substance: SIROLIMUS
     Indication: LUNG TRANSPLANT
     Dosage: 0.5 MG, 4X/DAY
     Route: 048
  11. PROGRAF [Concomitant]
     Active Substance: TACROLIMUS
     Dosage: 4 MG, 1X/DAY (1 MG CAPSULE; 2MG IN AM AND 2 MG PM)
  12. VITAMIN C [Concomitant]
     Active Substance: ASCORBIC ACID
     Dosage: 500 MG, DAILY
     Route: 048
  13. FLONASE [Concomitant]
     Active Substance: FLUTICASONE PROPIONATE
     Dosage: 50 ?G, DAILY (SPRAY 2 SPRAYS IN EACH NOSTRIL DAILY)
     Route: 045
  14. PRILOSEC [Concomitant]
     Active Substance: OMEPRAZOLE MAGNESIUM
     Dosage: 20 MG, DAILY
     Route: 048
  15. BACTRIM DS [Concomitant]
     Active Substance: SULFAMETHOXAZOLE\TRIMETHOPRIM
     Dosage: 1 DF, UNK (SULFAMETHOXAZOLE: 800 MG, TRIMETHOPRIM: 160 MG) (1 TABLET BY MOUTH THREE TIMES A WEEK)
     Route: 048
  16. PRAVACHOL [Concomitant]
     Active Substance: PRAVASTATIN SODIUM
     Dosage: 20MG TABLET (1 TABLET BY MOUTH EVERY EVENING)
     Route: 048
  17. ASPIRIN 81 [Concomitant]
     Active Substance: ASPIRIN
     Dosage: 81 MG, DAILY
  18. CALCIUM CARBONATE AND VITAMIN D [Concomitant]
     Active Substance: CALCIUM CARBONATE\VITAMIN D
     Dosage: 1 DF, 2X/DAY
     Route: 048
  19. RAPAMUNE [Suspect]
     Active Substance: SIROLIMUS
     Dosage: 0.5 MG, ALTERNATE DAY [0.5MG EVERY OTHER DAY]
     Route: 048
  20. FOSAMAX [Concomitant]
     Active Substance: ALENDRONATE SODIUM
     Dosage: 70 MG (1 TABLET BY MOUTH EVERY 7 DAYS)
     Route: 048
  21. LOPRESSOR [Concomitant]
     Active Substance: METOPROLOL TARTRATE
     Dosage: 50 MG, 2X/DAY
     Route: 048
  22. ZOFRAN [Concomitant]
     Active Substance: ONDANSETRON HYDROCHLORIDE
     Indication: NAUSEA
     Dosage: 4 MG TABLET (TAKE 1 TABLET BY MOUTH EVERY 8 HOURS AS NEEDED)
     Route: 048

REACTIONS (3)
  - Off label use [Unknown]
  - Dementia [Unknown]
  - Product use in unapproved indication [Unknown]
